FAERS Safety Report 6210289-4 (Version None)
Quarter: 2009Q2

REPORT INFORMATION
  Report Type: 
  Country: None (occurrence: None)
  Receive Date: 20090529
  Receipt Date: 20090529
  Transmission Date: 20091009
  Serious: Yes (Other)
  Sender: FDA-Public Use
  Company Number: None

PATIENT
  Age: 23 Year
  Sex: Female
  Weight: 70.3075 kg

DRUGS (2)
  1. CLEAR EYES, DRY EYES RED RELIEF HYPROMELLOSE, GLYCERIN,NAPHAZOL [Suspect]
     Indication: DRY EYE
     Dosage: 2 DROPS PER EYE ONCE DAILY OPHTHALMIC
     Route: 047
     Dates: start: 20090526, end: 20090528
  2. CLEAR EYES, DRY EYES RED RELIEF HYPROMELLOSE, GLYCERIN,NAPHAZOL [Suspect]
     Indication: OCULAR HYPERAEMIA
     Dosage: 2 DROPS PER EYE ONCE DAILY OPHTHALMIC
     Route: 047
     Dates: start: 20090526, end: 20090528

REACTIONS (6)
  - DIZZINESS [None]
  - EYE PAIN [None]
  - HEART RATE INCREASED [None]
  - NAUSEA [None]
  - PARAESTHESIA [None]
  - TREMOR [None]
